FAERS Safety Report 16009331 (Version 3)
Quarter: 2019Q2

REPORT INFORMATION
  Report Type: Report from Study
  Country: None (occurrence: AR)
  Receive Date: 20190225
  Receipt Date: 20190603
  Transmission Date: 20190711
  Serious: Yes (Hospitalization, Other)
  Sender: FDA-Public Use
  Company Number: AR-ABBVIE-19K-007-2654586-00

PATIENT
  Sex: Female

DRUGS (1)
  1. HUMIRA [Suspect]
     Active Substance: ADALIMUMAB
     Indication: ANKYLOSING SPONDYLITIS
     Route: 058
     Dates: start: 20180928

REACTIONS (7)
  - Uterine leiomyoma [Not Recovered/Not Resolved]
  - Ankylosing spondylitis [Not Recovered/Not Resolved]
  - Hysterectomy [Unknown]
  - Uterine pain [Not Recovered/Not Resolved]
  - Postoperative wound infection [Recovered/Resolved]
  - Syncope [Unknown]
  - Uterine enlargement [Unknown]
